FAERS Safety Report 4987249-4 (Version None)
Quarter: 2006Q2

REPORT INFORMATION
  Report Type: 
  Country: None (occurrence: None)
  Receive Date: 20060501
  Receipt Date: 20060104
  Transmission Date: 20061013
  Serious: Yes (Hospitalization)
  Sender: FDA-Public Use
  Company Number: US-MERCK-0601USA00337

PATIENT
  Age: 56 Year
  Sex: Male
  Weight: 134 kg

DRUGS (15)
  1. VIOXX [Suspect]
     Indication: OSTEOARTHRITIS
     Route: 048
     Dates: start: 20000101, end: 20040803
  2. ZESTRIL [Concomitant]
     Indication: HYPERTENSION
     Route: 065
     Dates: start: 19950101, end: 20050301
  3. GLUCOTROL XL [Concomitant]
     Indication: DIABETES MELLITUS
     Route: 065
  4. OXYCONTIN [Concomitant]
     Indication: OSTEOARTHRITIS
     Route: 065
     Dates: start: 20030812, end: 20050606
  5. LASIX [Concomitant]
     Indication: HYPERTENSION
     Route: 065
     Dates: start: 20010601, end: 20040803
  6. LASIX [Concomitant]
     Indication: OEDEMA PERIPHERAL
     Route: 065
     Dates: start: 20010601, end: 20040803
  7. DIFLUCAN [Concomitant]
     Route: 065
  8. LOTRISONE [Concomitant]
     Route: 065
  9. ZITHROMAX [Concomitant]
     Route: 065
  10. DYRENIUM [Concomitant]
     Route: 065
  11. LISINOPRIL [Concomitant]
     Route: 065
  12. SKELAXIN [Concomitant]
     Route: 065
  13. GLIPIZIDE [Concomitant]
     Route: 065
  14. MAXZIDE [Concomitant]
     Indication: HYPERTENSION
     Route: 065
     Dates: start: 19990422, end: 20040803
  15. MAXZIDE [Concomitant]
     Indication: OEDEMA PERIPHERAL
     Route: 065
     Dates: start: 19990422, end: 20040803

REACTIONS (9)
  - BENIGN PROSTATIC HYPERPLASIA [None]
  - CORONARY ARTERY OCCLUSION [None]
  - COUGH [None]
  - DYSPNOEA EXERTIONAL [None]
  - ERECTILE DYSFUNCTION [None]
  - HAEMATOCHEZIA [None]
  - HYPERLIPIDAEMIA [None]
  - LUNG DISORDER [None]
  - MYOCARDIAL INFARCTION [None]
